FAERS Safety Report 4796789-2 (Version None)
Quarter: 2005Q4

REPORT INFORMATION
  Report Type: 
  Country: None (occurrence: None)
  Receive Date: 20051011
  Receipt Date: 20051011
  Transmission Date: 20060501
  Serious: Yes (Disabling)
  Sender: FDA-Public Use
  Company Number: None

PATIENT
  Age: 57 Year
  Sex: Male
  Weight: 79.3795 kg

DRUGS (4)
  1. KLONOPIN [Suspect]
     Indication: ANXIETY
     Dosage: 1X/DAY 4 WKS PO
     Route: 048
     Dates: start: 20040929, end: 20041012
  2. KLONOPIN [Suspect]
     Indication: FOREIGN TRAVEL
     Dosage: 1X/DAY 4 WKS PO
     Route: 048
     Dates: start: 20040929, end: 20041012
  3. KLONOPIN [Suspect]
     Indication: ANXIETY
     Dosage: 1X/DAY 4 WKS PO
     Route: 048
     Dates: start: 20041115, end: 20041129
  4. KLONOPIN [Suspect]
     Indication: FOREIGN TRAVEL
     Dosage: 1X/DAY 4 WKS PO
     Route: 048
     Dates: start: 20041115, end: 20041129

REACTIONS (13)
  - ABNORMAL DREAMS [None]
  - ALOPECIA [None]
  - BURNING SENSATION [None]
  - DRUG WITHDRAWAL SYNDROME [None]
  - DYSPEPSIA [None]
  - EPILEPSY [None]
  - HEADACHE [None]
  - INCORRECT DRUG ADMINISTRATION DURATION [None]
  - JAW DISORDER [None]
  - MIDDLE INSOMNIA [None]
  - MUSCLE TWITCHING [None]
  - PAIN [None]
  - TINNITUS [None]
